FAERS Safety Report 24293014 (Version 1)
Quarter: 2024Q3

REPORT INFORMATION
  Report Type: Spontaneous
  Country: US (occurrence: None)
  Receive Date: 20240906
  Receipt Date: 20240906
  Transmission Date: 20241017
  Serious: No
  Sender: DOMPE FARMACEUTICI
  Company Number: US-FARMAPROD-202308-202311-3352

PATIENT
  Sex: Male

DRUGS (20)
  1. OXERVATE [Suspect]
     Active Substance: CENEGERMIN-BKBJ
     Indication: Neurotrophic keratopathy
     Route: 047
     Dates: start: 20231017
  2. ALOGLIPTIN [Concomitant]
     Active Substance: ALOGLIPTIN
  3. LOTEPREDNOL ETABONATE [Concomitant]
     Active Substance: LOTEPREDNOL ETABONATE
  4. COLCHICINE [Concomitant]
     Active Substance: COLCHICINE
  5. ASCORBIC ACID [Concomitant]
     Active Substance: ASCORBIC ACID
  6. FERROUS SULFATE [Concomitant]
     Active Substance: FERROUS SULFATE
     Dosage: 324(65)MG
  7. ATORVASTATIN CALCIUM [Concomitant]
     Active Substance: ATORVASTATIN CALCIUM
  8. ALLOPURINOL [Concomitant]
     Active Substance: ALLOPURINOL
  9. LUMIGAN [Concomitant]
     Active Substance: BIMATOPROST
  10. MOXIFLOXACIN [Concomitant]
     Active Substance: MOXIFLOXACIN
  11. XARELTO [Concomitant]
     Active Substance: RIVAROXABAN
  12. METOPROLOL SUCCINATE [Concomitant]
     Active Substance: METOPROLOL SUCCINATE
  13. METFORMIN HYDROCHLORIDE [Concomitant]
     Active Substance: METFORMIN HYDROCHLORIDE
  14. TORSEMIDE [Concomitant]
     Active Substance: TORSEMIDE
  15. MULTI-VITAMIN [Concomitant]
     Active Substance: .ALPHA.-TOCOPHEROL ACETATE, DL-\ASCORBIC ACID\CYANOCOBALAMIN\FLUORIDE ION\FOLIC ACID\NIACIN\PYRIDOXI
  16. ASPIRIN [Concomitant]
     Active Substance: ASPIRIN
  17. LISINOPRIL [Concomitant]
     Active Substance: LISINOPRIL
  18. GLIPIZIDE [Concomitant]
     Active Substance: GLIPIZIDE
  19. GABAPENTIN [Concomitant]
     Active Substance: GABAPENTIN
  20. FLUTICASONE PROPIONATE\SALMETEROL XINAFOATE [Concomitant]
     Active Substance: FLUTICASONE PROPIONATE\SALMETEROL XINAFOATE

REACTIONS (1)
  - Drug ineffective [Unknown]
